FAERS Safety Report 5243479-8 (Version None)
Quarter: 2007Q1

REPORT INFORMATION
  Report Type: 
  Country: None (occurrence: None)
  Receive Date: 20070222
  Receipt Date: 20070209
  Transmission Date: 20070707
  Serious: Yes (Hospitalization, Other)
  Sender: FDA-Public Use
  Company Number: PHNU2007DE00506

PATIENT
  Age: 47 Year
  Sex: Female
  Weight: 67 kg

DRUGS (21)
  1. BISOPROLOL FUMARATE [Concomitant]
     Indication: TACHYCARDIA
     Dosage: 5 MG, BID
     Dates: start: 20060601
  2. LEVOTHYROXINE SODIUM [Concomitant]
     Dosage: 75 MG, BID
  3. ACETYLSALICYLIC ACID SRT [Concomitant]
     Indication: VEIN DISORDER
     Dosage: 100 MG, QD
     Route: 048
     Dates: start: 20060501
  4. ALLOPURINOL SODIUM [Concomitant]
     Dosage: 150 MG, QD
     Route: 048
  5. OMEPRAZOL ^AZUPHARMA^ [Concomitant]
     Dosage: 20 MG, QD
     Route: 048
  6. IBUPROFEN [Concomitant]
     Dosage: 600 MG, QD
  7. URBASON [Concomitant]
     Dosage: 0.5 DF, QD
  8. NOVAMINSULFON-RATIOPHARM [Concomitant]
  9. LANTUS [Concomitant]
  10. INSUMAN RAPID [Concomitant]
  11. ERYPO FS [Concomitant]
     Dosage: 1 DF, TIW
     Route: 058
  12. EINSALPHA [Concomitant]
     Dosage: 1 DF, QW
     Route: 042
  13. SOLU-DACORTIN [Concomitant]
     Dosage: 1 DF, TIW
     Route: 042
  14. BONDRONAT [Concomitant]
     Dosage: 1 DF, QMO
  15. VITAMIN B KOMPLEX [Concomitant]
     Dosage: 1 DF, QW
     Route: 042
  16. NEFRO ZINC [Concomitant]
     Dosage: 1 DF, TIW
  17. IMMUNOSPORIN [Suspect]
     Indication: PSORIATIC ARTHROPATHY
     Dosage: 100 MG, BID
     Route: 048
     Dates: start: 20051001
  18. IMMUNOSPORIN [Suspect]
     Dosage: 150 MG
     Dates: start: 20051001
  19. IMMUNOSPORIN [Suspect]
     Dosage: 50 MG, BID
     Route: 048
     Dates: start: 20061216
  20. IBUFLAM [Suspect]
  21. ISOPTIN [Concomitant]
     Indication: TACHYCARDIA
     Dates: end: 20060601

REACTIONS (11)
  - BLOOD ALKALINE PHOSPHATASE INCREASED [None]
  - C-REACTIVE PROTEIN INCREASED [None]
  - CEREBRAL INFARCTION [None]
  - DRUG LEVEL DECREASED [None]
  - ERYSIPELAS [None]
  - PAROTITIS [None]
  - PERIANAL ABSCESS [None]
  - PSORIASIS [None]
  - SEPSIS [None]
  - VAGINITIS BACTERIAL [None]
  - VENOUS OCCLUSION [None]
